FAERS Safety Report 9067133 (Version 1)
Quarter: 2013Q1

REPORT INFORMATION
  Report Type: Report from Study
  Country: US (occurrence: US)
  Receive Date: 20130131
  Receipt Date: 20130131
  Transmission Date: 20140127
  Serious: No
  Sender: FDA-Public Use
  Company Number: US-ABBOTT-12P-163-0999120-00

PATIENT
  Age: 61 Year
  Sex: Female

DRUGS (16)
  1. HUMIRA [Suspect]
     Indication: ARTHRITIS REACTIVE
     Route: 058
  2. METHOTREXATE [Concomitant]
     Indication: PRODUCT USED FOR UNKNOWN INDICATION
     Dosage: 7/10ML WEEKLY
  3. FOLIC ACID [Concomitant]
     Indication: PRODUCT USED FOR UNKNOWN INDICATION
  4. INDOMETHACIN [Concomitant]
     Indication: ARTHRITIS REACTIVE
  5. NEXIUM [Concomitant]
     Indication: GASTROOESOPHAGEAL REFLUX DISEASE
     Dosage: DAILY
  6. CLARITIN [Concomitant]
     Indication: PRODUCT USED FOR UNKNOWN INDICATION
  7. ASTEPRO [Concomitant]
     Indication: ALLERGIC SINUSITIS
     Dosage: 1 SPRAY EACH NOSTIL
  8. FLONASE [Concomitant]
     Indication: ALLERGIC SINUSITIS
     Dosage: 1 SPRAY EACH NOSTIL
  9. TOPROL [Concomitant]
     Indication: ARRHYTHMIA
  10. DETROL [Concomitant]
     Indication: POLLAKIURIA
  11. COLACE [Concomitant]
     Indication: CONSTIPATION
  12. FIBERCON [Concomitant]
     Indication: CONSTIPATION
  13. TYLENOL ARTHRITIS [Concomitant]
     Indication: PRODUCT USED FOR UNKNOWN INDICATION
  14. VITAMIN D [Concomitant]
     Indication: PRODUCT USED FOR UNKNOWN INDICATION
     Dosage: 1000 IU DAILY
  15. ESTRACE [Concomitant]
     Indication: VULVOVAGINAL DRYNESS
  16. PREDNISONE [Concomitant]
     Indication: PRODUCT USED FOR UNKNOWN INDICATION
     Dosage: 5MG MAINTENANCE DOSE

REACTIONS (3)
  - Device malfunction [Unknown]
  - Injection site pain [Recovering/Resolving]
  - Injection site urticaria [Recovering/Resolving]
